FAERS Safety Report 8716241 (Version 3)
Quarter: 2013Q4

REPORT INFORMATION
  Report Type: Spontaneous
  Country: CO (occurrence: CO)
  Receive Date: 20120810
  Receipt Date: 20131101
  Transmission Date: 20140711
  Serious: Yes (Other)
  Sender: FDA-Public Use
  Company Number: CO-009507513-1207COL011664

PATIENT
  Sex: Male

DRUGS (2)
  1. PEG-INTRON [Suspect]
     Indication: HEPATITIS C
     Dosage: 100 MICROGRAM, UNK
     Dates: start: 20120629
  2. REBETOL [Suspect]
     Dosage: 100 MICROGRAM, UNK

REACTIONS (2)
  - Leukopenia [Unknown]
  - Neutropenia [Unknown]
